FAERS Safety Report 5074977-8 (Version None)
Quarter: 2006Q3

REPORT INFORMATION
  Report Type: 
  Country: None (occurrence: None)
  Receive Date: 20060809
  Receipt Date: 20060712
  Transmission Date: 20061208
  Serious: Yes (Other)
  Sender: FDA-Public Use
  Company Number: PHEH2006US08949

PATIENT
  Age: 86 Year
  Sex: Female
  Weight: 61.224 kg

DRUGS (5)
  1. ZELNORM [Suspect]
     Indication: CONSTIPATION
     Dosage: 2 MG, ONCE/SINGLE
     Route: 048
     Dates: start: 20060711, end: 20060711
  2. ACTONEL [Concomitant]
     Indication: OSTEOPOROSIS
     Dosage: 55 UNK, QW
     Route: 048
  3. CARDIZEM [Concomitant]
     Indication: TACHYCARDIA
     Dosage: 120 UNK, QD
     Route: 048
  4. DYAZIDE [Concomitant]
     Indication: BLOOD PRESSURE
     Dosage: 37.5 UNK, QD
     Route: 048
  5. DIGOXIN [Concomitant]
     Dosage: 0.125 UNK, QD
     Route: 048

REACTIONS (3)
  - ASTHENIA [None]
  - DIARRHOEA [None]
  - TREMOR [None]
